FAERS Safety Report 8940086 (Version 6)
Quarter: 2013Q4

REPORT INFORMATION
  Report Type: Spontaneous
  Country: US (occurrence: US)
  Receive Date: 20121203
  Receipt Date: 20131121
  Transmission Date: 20140711
  Serious: No
  Sender: FDA-Public Use
  Company Number: US-009507513-1211USA012462

PATIENT
  Sex: Male

DRUGS (5)
  1. PEGINTRON [Suspect]
     Indication: HEPATITIS C
     Dosage: REDIPEN
     Dates: start: 20121125, end: 20130725
  2. PEGINTRON [Suspect]
     Dosage: VIAL
     Dates: start: 20050101, end: 20051201
  3. RIBAVIRIN [Suspect]
     Indication: HEPATITIS C
     Dosage: UNK
     Route: 048
     Dates: start: 20121125, end: 20130725
  4. RIBAVIRIN [Suspect]
     Dosage: UNK
     Dates: start: 20050101, end: 20051201
  5. VICTRELIS [Suspect]
     Indication: HEPATITIS C
     Dosage: UNK
     Route: 048
     Dates: start: 20121223, end: 20130725

REACTIONS (24)
  - Pain [Unknown]
  - Vomiting [Unknown]
  - Pyrexia [Unknown]
  - White blood cell count decreased [Unknown]
  - Nausea [Unknown]
  - Vomiting [Unknown]
  - Influenza like illness [Unknown]
  - Fatigue [Unknown]
  - Leukopenia [Unknown]
  - Dysgeusia [Unknown]
  - Decreased appetite [Unknown]
  - Headache [Unknown]
  - Vomiting [Recovered/Resolved]
  - Fatigue [Unknown]
  - Dysgeusia [Unknown]
  - Dry mouth [Unknown]
  - Leukopenia [Unknown]
  - Neuropathy peripheral [Unknown]
  - Nausea [Unknown]
  - Vomiting [Unknown]
  - Asthenia [Unknown]
  - White blood cell count decreased [Recovering/Resolving]
  - Platelet count decreased [Recovering/Resolving]
  - Hepatitis C [Unknown]
